FAERS Safety Report 17726859 (Version 2)
Quarter: 2020Q3

REPORT INFORMATION
  Report Type: Other
  Country: BR (occurrence: BR)
  Receive Date: 20200430
  Receipt Date: 20200825
  Transmission Date: 20201102
  Serious: Yes (Other)
  Sender: FDA-Public Use
  Company Number: BR-ROCHE-2251688

PATIENT
  Age: 80 Year
  Sex: Male
  Weight: 74 kg

DRUGS (14)
  1. AMOXICILLIN. [Concomitant]
     Active Substance: AMOXICILLIN
  2. OXCARBAZEPINE. [Concomitant]
     Active Substance: OXCARBAZEPINE
     Indication: ANEURYSM
     Dosage: 1 TABLET TWICE DAILY
  3. CYMBI (BRAZIL) [Concomitant]
     Indication: PAIN
  4. ESBRIET [Suspect]
     Active Substance: PIRFENIDONE
     Indication: IDIOPATHIC PULMONARY FIBROSIS
     Route: 048
     Dates: start: 20181227
  5. ESBRIET [Suspect]
     Active Substance: PIRFENIDONE
     Route: 048
     Dates: start: 201812
  6. DOMPERIDONE [Concomitant]
     Active Substance: DOMPERIDONE
     Indication: GASTROOESOPHAGEAL REFLUX DISEASE
     Dosage: 1 TABLET 3 TIMES DAILY
  7. LANSOPRAZOLE. [Concomitant]
     Active Substance: LANSOPRAZOLE
     Indication: HIATUS HERNIA
  8. LANSOPRAZOLE. [Concomitant]
     Active Substance: LANSOPRAZOLE
     Indication: GASTROOESOPHAGEAL REFLUX DISEASE
     Dosage: 1 TABLET TWICE DAILY
  9. ATROVENT [Concomitant]
     Active Substance: IPRATROPIUM BROMIDE
     Dosage: 30 DROPS WITH SALINE SOLUTION 2 OR 3 TIMES DAILY
     Route: 055
  10. LOSARTAN. [Concomitant]
     Active Substance: LOSARTAN
     Indication: HYPERTENSION
     Dosage: 1 TABLET
  11. DOMPERIDONE [Concomitant]
     Active Substance: DOMPERIDONE
     Indication: HIATUS HERNIA
  12. RANITIDINE. [Concomitant]
     Active Substance: RANITIDINE
     Indication: GASTROOESOPHAGEAL REFLUX DISEASE
  13. CARBAMAZEPINE. [Concomitant]
     Active Substance: CARBAMAZEPINE
     Indication: INTRACRANIAL ANEURYSM
  14. CYMBI (BRAZIL) [Concomitant]
     Indication: PROPHYLAXIS

REACTIONS (19)
  - Peripheral swelling [Not Recovered/Not Resolved]
  - Erysipelas [Not Recovered/Not Resolved]
  - Nausea [Unknown]
  - Vitamin D decreased [Unknown]
  - Sebaceous gland disorder [Not Recovered/Not Resolved]
  - Limb mass [Recovering/Resolving]
  - Somnolence [Not Recovered/Not Resolved]
  - Skin disorder [Not Recovered/Not Resolved]
  - Rash [Recovered/Resolved]
  - Nausea [Recovered/Resolved]
  - Erythema [Recovered/Resolved]
  - Fall [Unknown]
  - Mass [Recovering/Resolving]
  - Tooth disorder [Recovering/Resolving]
  - Skin papilloma [Not Recovered/Not Resolved]
  - Body temperature fluctuation [Recovering/Resolving]
  - Purpura [Recovering/Resolving]
  - Malaise [Unknown]
  - Pruritus [Not Recovered/Not Resolved]

NARRATIVE: CASE EVENT DATE: 2019
